FAERS Safety Report 8301380 (Version 2)
Quarter: 2012Q4

REPORT INFORMATION
  Report Type: 
  Country: US (occurrence: US)
  Receive Date: 20111219
  Receipt Date: 20121026
  Transmission Date: 20130627
  Serious: No
  Sender: FDA-Public Use
  Company Number: US-ASTRAZENECA-2011SE24984

PATIENT

DRUGS (3)
  1. CRESTOR [Suspect]
     Route: 048
  2. BENICAR [Interacting]
  3. VITAMIN D [Interacting]

REACTIONS (3)
  - Drug interaction [Unknown]
  - Low density lipoprotein increased [Unknown]
  - Drug ineffective [Unknown]
